FAERS Safety Report 19657056 (Version 1)
Quarter: 2021Q3

REPORT INFORMATION
  Report Type: Spontaneous
  Country: US (occurrence: US)
  Receive Date: 20210804
  Receipt Date: 20210804
  Transmission Date: 20211014
  Serious: Yes (Death, Other)
  Sender: FDA-Public Use
  Company Number: US-SA-2021SA257582

PATIENT
  Age: 81 Year
  Sex: Male

DRUGS (1)
  1. ZANTAC [Suspect]
     Active Substance: RANITIDINE HYDROCHLORIDE
     Indication: DYSPEPSIA
     Dosage: FREQUENCY: OTHER
     Dates: start: 201301, end: 201901

REACTIONS (1)
  - Prostate cancer stage IV [Fatal]

NARRATIVE: CASE EVENT DATE: 20170101
